FAERS Safety Report 6277678-3 (Version None)
Quarter: 2009Q3

REPORT INFORMATION
  Report Type: 
  Country: None (occurrence: None)
  Receive Date: 20090722
  Receipt Date: 20090715
  Transmission Date: 20100115
  Serious: Yes (Hospitalization)
  Sender: FDA-Public Use
  Company Number: B0584991A

PATIENT
  Sex: Female
  Weight: 65 kg

DRUGS (1)
  1. ALLI [Suspect]
     Dosage: 2CAP PER DAY
     Route: 065
     Dates: start: 20090409, end: 20090608

REACTIONS (7)
  - ABDOMINAL INJURY [None]
  - AMNESIA [None]
  - DIZZINESS [None]
  - LOSS OF CONSCIOUSNESS [None]
  - PAIN [None]
  - POOR QUALITY SLEEP [None]
  - ROAD TRAFFIC ACCIDENT [None]
